FAERS Safety Report 7270125-4 (Version None)
Quarter: 2011Q1

REPORT INFORMATION
  Report Type: 
  Country: None (occurrence: None)
  Receive Date: 20110125
  Receipt Date: 20110125
  Transmission Date: 20110831
  Serious: Yes (Other)
  Sender: FDA-Public Use
  Company Number: None

PATIENT
  Age: 32 Year
  Sex: Female
  Weight: 71.6683 kg

DRUGS (2)
  1. CYMBALTA [Suspect]
     Indication: NEURALGIA
  2. CYMBALTA [Suspect]
     Indication: NEURALGIA

REACTIONS (1)
  - DRUG WITHDRAWAL SYNDROME [None]
